FAERS Safety Report 19691888 (Version 1)
Quarter: 2021Q3

REPORT INFORMATION
  Report Type: Report from Study
  Country: IN (occurrence: IN)
  Receive Date: 20210812
  Receipt Date: 20210812
  Transmission Date: 20211014
  Serious: Yes (Other)
  Sender: FDA-Public Use
  Company Number: IN-PFIZER INC-202100969018

PATIENT

DRUGS (1)
  1. METHYLPREDNISOLONE SODIUM SUCCINATE. [Suspect]
     Active Substance: METHYLPREDNISOLONE SODIUM SUCCINATE
     Indication: ENCEPHALITIS AUTOIMMUNE
     Dosage: 20?30 MG/KG/D FOR 5 DAYS UP TO MAXIMUM OF 1G/D
     Route: 042

REACTIONS (2)
  - Melaena [Unknown]
  - Diabetic ketoacidosis [Unknown]
